FAERS Safety Report 6749442-X (Version None)
Quarter: 2010Q2

REPORT INFORMATION
  Report Type: 
  Country: None (occurrence: None)
  Receive Date: 20100601
  Receipt Date: 20100526
  Transmission Date: 20101027
  Serious: Yes (Other)
  Sender: FDA-Public Use
  Company Number: MY-ROCHE-705439

PATIENT
  Age: 60 Year
  Sex: Female

DRUGS (1)
  1. ROCEPHIN [Suspect]
     Indication: PROPHYLAXIS
     Dosage: FREQUENCY: 1
     Route: 042

REACTIONS (3)
  - ANGIOEDEMA [None]
  - EYE INFLAMMATION [None]
  - HYPOTENSION [None]
